FAERS Safety Report 8189382-5 (Version None)
Quarter: 2012Q1

REPORT INFORMATION
  Report Type: 
  Country: None (occurrence: None)
  Receive Date: 20120307
  Receipt Date: 20120229
  Transmission Date: 20120608
  Serious: No
  Sender: FDA-Public Use
  Company Number: US-PFIZER INC-2012055663

PATIENT
  Sex: Male

DRUGS (1)
  1. SUTENT [Suspect]
     Indication: BONE NEOPLASM MALIGNANT
     Dosage: 50 MG, 1X/DAY
     Dates: start: 20111122

REACTIONS (2)
  - BONE NEOPLASM MALIGNANT [None]
  - DISEASE PROGRESSION [None]
